FAERS Safety Report 25019207 (Version 1)
Quarter: 2025Q1

REPORT INFORMATION
  Report Type: Spontaneous
  Country: CN (occurrence: CN)
  Receive Date: 20250227
  Receipt Date: 20250227
  Transmission Date: 20250409
  Serious: Yes (Life-Threatening)
  Sender: NOVARTIS
  Company Number: CN-002147023-NVSC2025CN027838

PATIENT
  Age: 56 Year
  Sex: Male
  Weight: 63 kg

DRUGS (2)
  1. SACUBITRIL\VALSARTAN [Suspect]
     Active Substance: SACUBITRIL\VALSARTAN
     Indication: Cardiac failure
     Dosage: 50 MG, BID
     Route: 048
     Dates: start: 20250204, end: 20250205
  2. SACUBITRIL\VALSARTAN [Suspect]
     Active Substance: SACUBITRIL\VALSARTAN
     Indication: Ventricular remodelling

REACTIONS (3)
  - Hypotension [Recovered/Resolved]
  - Shock [Unknown]
  - Dizziness [Unknown]

NARRATIVE: CASE EVENT DATE: 20250204
